FAERS Safety Report 19945393 (Version 8)
Quarter: 2024Q4

REPORT INFORMATION
  Report Type: Spontaneous
  Country: US (occurrence: US)
  Receive Date: 20211012
  Receipt Date: 20241204
  Transmission Date: 20250114
  Serious: Yes (Disabling, Other)
  Sender: ORGANON
  Company Number: US-ORGANON-O2110USA000827

PATIENT
  Sex: Female

DRUGS (9)
  1. SINGULAIR [Suspect]
     Active Substance: MONTELUKAST SODIUM
     Dosage: TAKE 1 TABLET BY MOUTH NIGHTLY FOR 30 DAYS
     Route: 048
     Dates: start: 2011, end: 20150904
  2. SINGULAIR [Suspect]
     Active Substance: MONTELUKAST SODIUM
     Dosage: 1 DOSAGE FORM, QD (1 TABLET NIGHTLY)
     Route: 048
     Dates: start: 20170411, end: 20180409
  3. SINGULAIR [Suspect]
     Active Substance: MONTELUKAST SODIUM
     Dosage: 1 DOSAGE FORM, QD (1 TABLET NIGHTLY)
     Route: 048
     Dates: start: 20210909, end: 20220914
  4. SINGULAIR [Suspect]
     Active Substance: MONTELUKAST SODIUM
     Dosage: 1 DOSAGE FORM, QD (1 TABLET NIGHTLY)
     Route: 048
     Dates: start: 20220914, end: 20231107
  5. SINGULAIR [Suspect]
     Active Substance: MONTELUKAST SODIUM
     Dosage: 1 DOSAGE FORM, QD (1 TABLET NIGHTLY)
     Route: 048
     Dates: start: 20231107, end: 20240229
  6. SINGULAIR [Suspect]
     Active Substance: MONTELUKAST SODIUM
     Dosage: 1 DOSAGE FORM, QD (1 TABLET NIGHTLY)
     Route: 048
     Dates: start: 20240229
  7. MAXITROL [DEXAMETHASONE;NEOMYCIN SULFATE;POLYMYXIN B SULFATE] [Concomitant]
     Dosage: 1 DROP
     Dates: start: 20230923, end: 20240625
  8. CHOLECALCIFEROL [Concomitant]
     Active Substance: CHOLECALCIFEROL
     Dosage: 1 DOSAGE FORM, QW (50000 UNITS TOTAL)
     Route: 048
     Dates: start: 20230612, end: 20240229
  9. METHYLDOPA [Concomitant]
     Active Substance: METHYLDOPA
     Dosage: 1 DOSAGE FORM, TID
     Route: 048
     Dates: start: 20180129, end: 20181019

REACTIONS (34)
  - Neuropsychological symptoms [Not Recovered/Not Resolved]
  - Confusional state [Not Recovered/Not Resolved]
  - Anxiety [Not Recovered/Not Resolved]
  - Somnambulism [Not Recovered/Not Resolved]
  - Hallucination, visual [Recovered/Resolved]
  - Major depression [Recovering/Resolving]
  - Suicidal ideation [Recovering/Resolving]
  - Suicidal behaviour [Unknown]
  - Papillary thyroid cancer [Unknown]
  - Feeling abnormal [Unknown]
  - Tremor [Unknown]
  - Nightmare [Unknown]
  - Agitation [Unknown]
  - Restlessness [Unknown]
  - Obsessive-compulsive disorder [Unknown]
  - Dysphemia [Unknown]
  - Tic [Unknown]
  - Panic attack [Unknown]
  - Attention deficit hyperactivity disorder [Unknown]
  - Insomnia [Unknown]
  - Mood swings [Unknown]
  - Stress [Unknown]
  - Nervousness [Unknown]
  - Decreased interest [Unknown]
  - Depressed mood [Unknown]
  - Feeling of despair [Unknown]
  - Initial insomnia [Unknown]
  - Fatigue [Recovering/Resolving]
  - Decreased appetite [Unknown]
  - Hyperphagia [Unknown]
  - Post procedural hypothyroidism [Unknown]
  - Maternal exposure during pregnancy [Recovered/Resolved]
  - Claustrophobia [Unknown]
  - Somnolence [Unknown]

NARRATIVE: CASE EVENT DATE: 20110101
